FAERS Safety Report 6632329-0 (Version None)
Quarter: 2010Q1

REPORT INFORMATION
  Report Type: 
  Country: None (occurrence: None)
  Receive Date: 20100312
  Receipt Date: 20100308
  Transmission Date: 20100710
  Serious: Yes (Other)
  Sender: FDA-Public Use
  Company Number: B0638178A

PATIENT
  Sex: Male

DRUGS (2)
  1. AUGMENTIN [Suspect]
     Indication: VIRAL INFECTION
     Dosage: 1UNIT SINGLE DOSE
     Route: 048
     Dates: start: 20090201, end: 20090201
  2. NEOCODION [Suspect]
     Indication: VIRAL INFECTION
     Dosage: 1UNIT SINGLE DOSE
     Route: 048
     Dates: start: 20090201, end: 20090201

REACTIONS (7)
  - ANAPHYLACTOID REACTION [None]
  - CHILLS [None]
  - GENERALISED ERYTHEMA [None]
  - HYPOTHERMIA [None]
  - LOSS OF CONSCIOUSNESS [None]
  - MALAISE [None]
  - SKIN TEST NEGATIVE [None]
